FAERS Safety Report 8026596-9 (Version None)
Quarter: 2012Q1

REPORT INFORMATION
  Report Type: 
  Country: None (occurrence: None)
  Receive Date: 20120106
  Receipt Date: 20111228
  Transmission Date: 20120608
  Serious: No
  Sender: FDA-Public Use
  Company Number: US-BIOGENIDEC-2011BI018552

PATIENT
  Sex: Female

DRUGS (4)
  1. TYSABRI [Suspect]
     Indication: MULTIPLE SCLEROSIS
     Route: 042
     Dates: start: 20070111
  2. AVONEX [Concomitant]
     Indication: MULTIPLE SCLEROSIS
     Route: 030
  3. COPAXONE [Concomitant]
     Indication: MULTIPLE SCLEROSIS
  4. TYSABRI [Suspect]
     Route: 042
     Dates: start: 20050425, end: 20060517

REACTIONS (6)
  - SERUM FERRITIN INCREASED [None]
  - CATARACT [None]
  - DEPRESSION [None]
  - VOLUME BLOOD INCREASED [None]
  - DIZZINESS POSTURAL [None]
  - HAEMOCHROMATOSIS [None]
